FAERS Safety Report 25250866 (Version 1)
Quarter: 2025Q2

REPORT INFORMATION
  Report Type: Report from Study
  Country: US (occurrence: US)
  Receive Date: 20250429
  Receipt Date: 20250429
  Transmission Date: 20250717
  Serious: Yes (Other)
  Sender: AUROBINDO
  Company Number: US-APOTEX-2015AP010329

PATIENT
  Age: 24 Year
  Sex: Female

DRUGS (1)
  1. PAROXETINE [Interacting]
     Active Substance: PAROXETINE
     Indication: Product used for unknown indication
     Route: 065

REACTIONS (3)
  - Alcohol poisoning [Unknown]
  - Aggression [Unknown]
  - Alcohol interaction [Unknown]
